FAERS Safety Report 9631758 (Version 2)
Quarter: 2014Q1

REPORT INFORMATION
  Report Type: Spontaneous
  Country: GB (occurrence: GB)
  Receive Date: 20131018
  Receipt Date: 20140128
  Transmission Date: 20141002
  Serious: Yes (Life-Threatening, Hospitalization, Other)
  Sender: FDA-Public Use
  Company Number: GB-009507513-1310GBR007616

PATIENT
  Age: 14 Year
  Sex: Female

DRUGS (3)
  1. MONTELUKAST SODIUM [Suspect]
     Dosage: 5 MG, 1/1 DAY
     Route: 065
  2. SALBUTAMOL [Suspect]
     Dosage: 1/1 AS NECESSARY
     Route: 065
  3. SERETIDE [Suspect]
     Dosage: 250 MICROGRAM, 2/1 DAYS
     Route: 065

REACTIONS (5)
  - Dyspnoea [Unknown]
  - Treatment noncompliance [Unknown]
  - Breath sounds abnormal [Unknown]
  - Cough [Unknown]
  - Fatigue [Unknown]
